FAERS Safety Report 16088943 (Version 1)
Quarter: 2019Q1

REPORT INFORMATION
  Report Type: Spontaneous
  Country: US (occurrence: US)
  Receive Date: 20190319
  Receipt Date: 20190319
  Transmission Date: 20190418
  Serious: No
  Sender: FDA-Public Use
  Company Number: US-MYLANLABS-2019M1020220

PATIENT

DRUGS (5)
  1. GABAPENTIN. [Concomitant]
     Active Substance: GABAPENTIN
     Dosage: 600 MILLIGRAM, TID
  2. GABAPENTIN. [Concomitant]
     Active Substance: GABAPENTIN
     Dosage: 300 MILLIGRAM, QD
  3. ERIVEDGE [Concomitant]
     Active Substance: VISMODEGIB
     Indication: CHEMOTHERAPY
     Dosage: 150 MILLIGRAM, QD
  4. TEMAZEPAM CAPSULES USP [Suspect]
     Active Substance: TEMAZEPAM
     Dosage: 30 MILLIGRAM
  5. TEMAZEPAM CAPSULES USP [Suspect]
     Active Substance: TEMAZEPAM
     Indication: INSOMNIA
     Dosage: 15 MILLIGRAM
     Route: 048

REACTIONS (1)
  - Drug ineffective [Recovered/Resolved]
